FAERS Safety Report 8213763-4 (Version None)
Quarter: 2012Q1

REPORT INFORMATION
  Report Type: 
  Country: None (occurrence: None)
  Receive Date: 20120316
  Receipt Date: 20120313
  Transmission Date: 20120608
  Serious: Yes (Death, Other)
  Sender: FDA-Public Use
  Company Number: PHHY2012CA021153

PATIENT
  Sex: Female

DRUGS (2)
  1. ZOLEDRONOC ACID [Suspect]
     Indication: OSTEOPOROSIS
     Route: 042
     Dates: start: 20100429
  2. ZOLEDRONOC ACID [Suspect]
     Route: 042
     Dates: start: 20110609

REACTIONS (2)
  - DEATH [None]
  - CARDIOPULMONARY FAILURE [None]
